FAERS Safety Report 9772052 (Version 1)
Quarter: 2013Q4

REPORT INFORMATION
  Report Type: Spontaneous
  Country: FR (occurrence: FR)
  Receive Date: 20131219
  Receipt Date: 20131219
  Transmission Date: 20140711
  Serious: Yes (Life-Threatening)
  Sender: FDA-Public Use
  Company Number: FR-JNJFOC-20131205112

PATIENT
  Age: 72 Year
  Sex: Male

DRUGS (6)
  1. ZYTIGA [Suspect]
     Indication: PROSTATE CANCER
     Dosage: 250MGX 4 TABLETS
     Route: 048
     Dates: start: 20131109
  2. COTAREG [Suspect]
     Indication: PRODUCT USED FOR UNKNOWN INDICATION
     Dosage: 160MG/25MG
     Route: 048
     Dates: start: 20131110, end: 20131111
  3. DIFFU K [Suspect]
     Indication: PRODUCT USED FOR UNKNOWN INDICATION
     Route: 065
     Dates: start: 20131109
  4. PERFALGAN [Concomitant]
     Route: 042
     Dates: start: 20131109
  5. PRIMPERAN [Concomitant]
     Dosage: 10MG/2ML
     Route: 042
     Dates: start: 20131109
  6. PREDNISONE [Concomitant]
     Route: 065
     Dates: start: 20131109

REACTIONS (1)
  - Renal failure acute [Unknown]
